FAERS Safety Report 10637148 (Version 1)
Quarter: 2014Q4

REPORT INFORMATION
  Report Type: Spontaneous
  Country: RO (occurrence: None)
  Receive Date: 20141204
  Receipt Date: 20141204
  Transmission Date: 20150529
  Serious: Yes (Life-Threatening)
  Sender: FDA-Public Use
  Company Number: 2014/083

PATIENT
  Age: 52 Year
  Sex: Male

DRUGS (4)
  1. OLANZAPINE (NO PREF. NAME) [Suspect]
     Active Substance: OLANZAPINE
     Indication: BIPOLAR DISORDER
  2. VALPROIC ACID. [Concomitant]
     Active Substance: VALPROIC ACID
  3. LAMOTRIGINE. [Suspect]
     Active Substance: LAMOTRIGINE
     Indication: BIPOLAR DISORDER
  4. LORAZEPAM. [Concomitant]
     Active Substance: LORAZEPAM

REACTIONS (13)
  - Blister [None]
  - Suicide attempt [None]
  - Conjunctivitis [None]
  - Skin hyperpigmentation [None]
  - Oral disorder [None]
  - Tongue disorder [None]
  - Genital disorder male [None]
  - Photophobia [None]
  - Scab [None]
  - Gingival disorder [None]
  - Conjunctival hyperaemia [None]
  - Toxic epidermal necrolysis [None]
  - Foreign body sensation in eyes [None]
